FAERS Safety Report 7554505-5 (Version None)
Quarter: 2011Q2

REPORT INFORMATION
  Report Type: 
  Country: None (occurrence: None)
  Receive Date: 20110617
  Receipt Date: 20110607
  Transmission Date: 20111010
  Serious: Yes (Life-Threatening)
  Sender: FDA-Public Use
  Company Number: B0724568A

PATIENT
  Sex: Male

DRUGS (12)
  1. ONDANSERTRON HYDROCHLORIDE [Concomitant]
     Indication: PRODUCT USED FOR UNKNOWN INDICATION
     Route: 065
  2. THIOGUANINE [Suspect]
     Indication: LYMPHOCYTIC LEUKAEMIA
     Dosage: 40MG PER DAY
     Route: 048
     Dates: start: 20101101, end: 20110318
  3. CERUBIDINE [Suspect]
     Indication: LYMPHOCYTIC LEUKAEMIA
     Dosage: 18MG PER DAY
     Route: 042
     Dates: start: 20110214, end: 20110221
  4. LEDERTREXATE [Concomitant]
     Indication: ACUTE LYMPHOCYTIC LEUKAEMIA
     Dosage: 12MG SINGLE DOSE
     Route: 037
     Dates: start: 20110309, end: 20110309
  5. CYTARABINE [Concomitant]
     Dosage: 25MG SINGLE DOSE
     Route: 037
     Dates: start: 20110309, end: 20110309
  6. VINCRISTINE [Concomitant]
     Indication: ACUTE LYMPHOCYTIC LEUKAEMIA
     Dosage: .9MG PER DAY
     Route: 042
     Dates: end: 20110221
  7. FUNGIZONE [Concomitant]
     Indication: PRODUCT USED FOR UNKNOWN INDICATION
     Route: 065
  8. OMEPRAZOLE [Concomitant]
     Indication: PRODUCT USED FOR UNKNOWN INDICATION
     Route: 065
  9. KIDROLASE [Suspect]
     Indication: LYMPHOCYTIC LEUKAEMIA
     Route: 042
     Dates: start: 20100601, end: 20110224
  10. DEPO-MEDROL [Concomitant]
     Indication: ACUTE LYMPHOCYTIC LEUKAEMIA
     Dosage: 20MG SINGLE DOSE
     Route: 037
     Dates: start: 20110309, end: 20110309
  11. CYCLOPHOSPHAMIDE [Suspect]
     Indication: LYMPHOCYTIC LEUKAEMIA
     Dosage: 60MG PER DAY
     Route: 042
     Dates: start: 20100701, end: 20110308
  12. CYTARABINE [Suspect]
     Indication: LYMPHOCYTIC LEUKAEMIA
     Dosage: 18MG CYCLIC
     Route: 058
     Dates: start: 20100801, end: 20110316

REACTIONS (6)
  - ABDOMINAL PAIN [None]
  - VENOOCCLUSIVE LIVER DISEASE [None]
  - THROMBOCYTOPENIA [None]
  - HEPATIC FUNCTION ABNORMAL [None]
  - HYPERBILIRUBINAEMIA [None]
  - AMMONIA INCREASED [None]
